FAERS Safety Report 20340746 (Version 2)
Quarter: 2022Q1

REPORT INFORMATION
  Report Type: Spontaneous
  Country: IN (occurrence: IN)
  Receive Date: 20220117
  Receipt Date: 20220124
  Transmission Date: 20220423
  Serious: Yes (Death, Other)
  Sender: FDA-Public Use
  Company Number: IN-PFIZER INC-2021291065

PATIENT
  Age: 81 Year
  Sex: Female

DRUGS (7)
  1. SUTENT [Suspect]
     Active Substance: SUNITINIB MALATE
     Indication: Metastatic renal cell carcinoma
     Dosage: 50 MG, CYCLIC ( 2 WEEKS ON AND 1 WEEK OFF)
     Route: 048
     Dates: start: 20210220, end: 20210430
  2. DOLO 650 [Concomitant]
     Indication: Pain
     Dosage: 650 MG (SOS)
  3. ECONORM [Concomitant]
     Indication: Diarrhoea
     Dosage: UNK (ACHET 1 TDS)
  4. REDOTIL [Concomitant]
     Indication: Diarrhoea
     Dosage: TAB TOS)
  5. COCONUT OIL [Concomitant]
     Active Substance: COCONUT OIL
     Indication: Palmar-plantar erythrodysaesthesia syndrome
     Dosage: UNK (LOCAL APPLICATION)
  6. DOXYPAL [Concomitant]
     Indication: Mouth ulceration
     Dosage: 2 DF (DISSOLVE 2 TAB DOXYPAL DT IN 1/2 GLASS WATER AND DO MOUTH GARGLES TDS)
  7. ZYTEE [BENZALKONIUM CHLORIDE;CHOLINE SALICYLATE] [Concomitant]
     Indication: Mouth ulceration
     Dosage: UNK (TDS)

REACTIONS (3)
  - Death [Fatal]
  - Osteoarthritis [Unknown]
  - Spinal osteoarthritis [Unknown]
